FAERS Safety Report 23473973 (Version 3)
Quarter: 2024Q1

REPORT INFORMATION
  Report Type: Spontaneous
  Country: IT (occurrence: None)
  Receive Date: 20240203
  Receipt Date: 20240223
  Transmission Date: 20240409
  Serious: Yes (Other)
  Sender: FDA-Public Use
  Company Number: IT-ROCHE-3501524

PATIENT
  Age: 60 Year

DRUGS (1)
  1. OCREVUS [Suspect]
     Active Substance: OCRELIZUMAB
     Indication: Product used for unknown indication
     Dosage: LAST CYCLE IN MARCH 2023
     Route: 065
     Dates: start: 20190115

REACTIONS (1)
  - Organising pneumonia [Unknown]
